FAERS Safety Report 5720011-3 (Version None)
Quarter: 2008Q2

REPORT INFORMATION
  Report Type: 
  Country: None (occurrence: None)
  Receive Date: 20080424
  Receipt Date: 20080424
  Transmission Date: 20081010
  Serious: No
  Sender: FDA-Public Use
  Company Number: None

PATIENT
  Age: 76 Year
  Sex: Male
  Weight: 127.9 kg

DRUGS (1)
  1. ROSIGLITAZONE [Suspect]
     Indication: DIABETES MELLITUS
     Dosage: 8 MG EVERY DAY PO
     Route: 048
     Dates: start: 20071101, end: 20071210

REACTIONS (2)
  - OEDEMA PERIPHERAL [None]
  - WEIGHT DECREASED [None]
